FAERS Safety Report 8124660-7 (Version None)
Quarter: 2012Q1

REPORT INFORMATION
  Report Type: 
  Country: None (occurrence: None)
  Receive Date: 20120209
  Receipt Date: 20120209
  Transmission Date: 20120608
  Serious: Yes (Other)
  Sender: FDA-Public Use
  Company Number: None

PATIENT
  Age: 50 Year
  Sex: Female
  Weight: 58.967 kg

DRUGS (1)
  1. ACTONEL [Suspect]
     Indication: OSTEOPOROSIS
     Dosage: 1 TABLET
     Route: 048
     Dates: start: 20090901, end: 20120104

REACTIONS (5)
  - ARTHRALGIA [None]
  - HEADACHE [None]
  - BONE DENSITY ABNORMAL [None]
  - ARTHRITIS [None]
  - BONE PAIN [None]
